FAERS Safety Report 5181003-9 (Version None)
Quarter: 2006Q4

REPORT INFORMATION
  Report Type: 
  Country: None (occurrence: None)
  Receive Date: 20061220
  Receipt Date: 20061207
  Transmission Date: 20070319
  Serious: Yes (Hospitalization)
  Sender: FDA-Public Use
  Company Number: PHBS2006ZA18995

PATIENT
  Sex: Male

DRUGS (1)
  1. TRILEPTAL [Suspect]

REACTIONS (4)
  - BLADDER DISORDER [None]
  - DRUG INTERACTION [None]
  - EPILEPSY [None]
  - PROSTATIC DISORDER [None]
